FAERS Safety Report 14899472 (Version 3)
Quarter: 2018Q2

REPORT INFORMATION
  Report Type: Spontaneous
  Country: US (occurrence: US)
  Receive Date: 20180516
  Receipt Date: 20180627
  Transmission Date: 20180711
  Serious: No
  Sender: FDA-Public Use
  Company Number: US-BRISTOL-MYERS SQUIBB COMPANY-BMS-2018-042611

PATIENT
  Sex: Female
  Weight: 79.3 kg

DRUGS (1)
  1. ORENCIA [Suspect]
     Active Substance: ABATACEPT
     Indication: RHEUMATOID ARTHRITIS
     Dosage: 125 MG, QWK
     Route: 058
     Dates: start: 201803

REACTIONS (5)
  - Adverse event [Unknown]
  - Rheumatoid arthritis [Unknown]
  - Skin ulcer [Unknown]
  - Skin disorder [Unknown]
  - Face injury [Unknown]
